FAERS Safety Report 15946238 (Version 1)
Quarter: 2019Q1

REPORT INFORMATION
  Report Type: Spontaneous
  Country: FR (occurrence: FR)
  Receive Date: 20190211
  Receipt Date: 20190211
  Transmission Date: 20190417
  Serious: Yes (Hospitalization)
  Sender: FDA-Public Use
  Company Number: FR-ROCHE-2263041

PATIENT
  Age: 83 Year
  Sex: Male
  Weight: 77 kg

DRUGS (9)
  1. OMEPRAZOLE. [Concomitant]
     Active Substance: OMEPRAZOLE
     Dosage: 1 CP EVENING
     Route: 065
  2. LOXEN (FRANCE) [Suspect]
     Active Substance: NICARDIPINE HYDROCHLORIDE
     Indication: PRODUCT USED FOR UNKNOWN INDICATION
     Dosage: 50 MG, ONE MORNING AND EVENING
     Route: 065
  3. BACTRIM [Concomitant]
     Active Substance: SULFAMETHOXAZOLE\TRIMETHOPRIM
     Route: 065
  4. GANCICLOVIR. [Suspect]
     Active Substance: GANCICLOVIR
     Indication: CYTOMEGALOVIRUS INFECTION
     Dosage: 2.5MG/KG
     Route: 041
     Dates: start: 20181123, end: 20181203
  5. MABTHERA [Suspect]
     Active Substance: RITUXIMAB
     Indication: PRODUCT USED FOR UNKNOWN INDICATION
     Route: 065
  6. ZYDELIG [Concomitant]
     Active Substance: IDELALISIB
     Route: 065
     Dates: start: 20180830
  7. ELIQUIS [Suspect]
     Active Substance: APIXABAN
     Indication: PRODUCT USED FOR UNKNOWN INDICATION
     Dosage: 2.5 MG, A MORNING AND EVENING CP
     Route: 065
  8. CARDENSIEL [Concomitant]
     Active Substance: BISOPROLOL FUMARATE
     Dosage: MORNING CP
     Route: 065
  9. SILODYX [Concomitant]
     Active Substance: SILODOSIN
     Dosage: 1 CP EVENING
     Route: 065

REACTIONS (5)
  - Leukopenia [Unknown]
  - Conjunctivitis [Recovered/Resolved]
  - Ocular discomfort [Recovered/Resolved]
  - Neutropenia [Recovered/Resolved]
  - Deafness [Recovering/Resolving]

NARRATIVE: CASE EVENT DATE: 20181124
